FAERS Safety Report 20994234 (Version 1)
Quarter: 2022Q2

REPORT INFORMATION
  Report Type: Spontaneous
  Country: GB (occurrence: GB)
  Receive Date: 20220622
  Receipt Date: 20220622
  Transmission Date: 20220720
  Serious: Yes (Disabling)
  Sender: FDA-Public Use
  Company Number: None

PATIENT
  Age: 68 Year
  Sex: Male
  Weight: 97 kg

DRUGS (15)
  1. AMLODIPINE [Suspect]
     Active Substance: AMLODIPINE BESYLATE
     Indication: Ill-defined disorder
     Dosage: UNK
     Dates: start: 20220613
  2. ATORVASTATIN [Concomitant]
     Active Substance: ATORVASTATIN
     Dosage: 1 DOSAGE FORM, QD (TAKE ONE TABLET ONCE A DAY)
     Dates: start: 20210630
  3. BETAMETHASONE VALERATE [Concomitant]
     Active Substance: BETAMETHASONE VALERATE
     Dosage: UNK APPLY SMALL AMOUNT TO AFFECTED  AREAS ON LEGS 1
     Dates: start: 20220506, end: 20220513
  4. CODEINE PHOSPHATE [Concomitant]
     Active Substance: CODEINE PHOSPHATE
     Indication: Analgesic therapy
     Dosage: UNK TAKE ONE OR TWO TABLETS AT NIGHT FOR PAIN RELIE.
     Dates: start: 20220531
  5. DOXAZOSIN [Concomitant]
     Active Substance: DOXAZOSIN MESYLATE
     Dosage: 2 MILLIGRAM, QD (TAKE ONE TABLET (2MG) ONCE A DAY.)
     Dates: start: 20220527
  6. FOLIC ACID [Concomitant]
     Active Substance: FOLIC ACID
     Dosage: 1 DOSAGE FORM, QW (TAKE ONE TABLET ONCE WEEKLY ON SUNDAY)
     Dates: start: 20210630
  7. FUROSEMIDE [Concomitant]
     Active Substance: FUROSEMIDE
     Dosage: 1 DOSAGE FORM, AM (TAKE ONE EACH MORNING)
     Dates: start: 20220506
  8. METFORMIN [Concomitant]
     Active Substance: METFORMIN HYDROCHLORIDE
     Dosage: 2 DOSAGE FORM, BID (TWO TO BE TAKEN TWICE A DAY)
     Dates: start: 20210630
  9. METHOTREXATE [Concomitant]
     Active Substance: METHOTREXATE
     Dosage: 20 MILLIGRAM, QW (20 MG (EIGHT TABLETS) TO BE TAKEN ONCE WEEKLY O)
     Dates: start: 20210630
  10. INSULIN ASPART [Concomitant]
     Active Substance: INSULIN ASPART
     Dosage: UNK USE AS DIRECTED
     Dates: start: 20210630
  11. OMEPRAZOLE [Concomitant]
     Active Substance: OMEPRAZOLE
     Dosage: 1 DOSAGE FORM, AM (ONE TO BE TAKEN IN THE MORNING)
     Dates: start: 20210630
  12. ACETAMINOPHEN [Concomitant]
     Active Substance: ACETAMINOPHEN
     Dosage: UNK TAKE ONE OR TWO TABLETS EVERY FOUR TO SIX HOURS...
     Dates: start: 20220531
  13. PREDNISOLONE [Concomitant]
     Active Substance: PREDNISOLONE
     Dosage: UNK- FOUR (20MG) ONCE DAILY FOR 5 DAYS,THREE (15MG) FOR A WEEK,TWO (10MG) FOR A WEEK.
     Dates: start: 20220531
  14. RAMIPRIL [Concomitant]
     Active Substance: RAMIPRIL
     Dosage: 1 DOSAGE FORM, QD (TAKE ONE CAPSULE ONCE A DAY.)
     Dates: start: 20210630
  15. SULFASALAZINE [Concomitant]
     Active Substance: SULFASALAZINE
     Dosage: UNK TAKE THREE TABLETS IN THE MORNING AND TWO TABLE...
     Dates: start: 20210630

REACTIONS (1)
  - Peripheral swelling [Recovered/Resolved]

NARRATIVE: CASE EVENT DATE: 20220613
